FAERS Safety Report 4284529-5 (Version None)
Quarter: 2004Q1

REPORT INFORMATION
  Report Type: 
  Country: None (occurrence: None)
  Receive Date: 20040130
  Receipt Date: 20040112
  Transmission Date: 20041129
  Serious: Yes (Other)
  Sender: FDA-Public Use
  Company Number: FR_040103392

PATIENT
  Age: 39 Year
  Sex: Female
  Weight: 75 kg

DRUGS (6)
  1. PROZAC [Suspect]
     Indication: MENTAL DISORDER
     Dosage: 40 MG/DAY
  2. XANAX [Concomitant]
  3. STILNOX (ZOLPIDEM) [Concomitant]
  4. DEPAKENE [Concomitant]
  5. AVLCARDYL (PROPRANOLOL) [Concomitant]
  6. NEO-MERCAZOLE TAB [Concomitant]

REACTIONS (5)
  - CAESAREAN SECTION [None]
  - COMPLICATIONS OF MATERNAL EXPOSURE TO THERAPEUTIC DRUGS [None]
  - GESTATIONAL DIABETES [None]
  - PREGNANCY [None]
  - PREMATURE BABY [None]
